FAERS Safety Report 8982008 (Version 1)
Quarter: 2012Q4

REPORT INFORMATION
  Report Type: 
  Country: US (occurrence: US)
  Receive Date: 20121212
  Receipt Date: 20121212
  Transmission Date: 20130627
  Serious: Yes (Other)
  Sender: FDA-Public Use
  Company Number: US-ASTELLAS-1114261

PATIENT
  Sex: Male

DRUGS (3)
  1. TARCEVA [Suspect]
     Indication: RENAL CANCER
     Route: 065
  2. INTERFERON NOS [Concomitant]
  3. INTERLEUKIN-2 [Concomitant]

REACTIONS (3)
  - Metastases to pancreas [Unknown]
  - Metastases to lung [Unknown]
  - Malaise [Unknown]
